FAERS Safety Report 13940175 (Version 1)
Quarter: 2017Q3

REPORT INFORMATION
  Report Type: Spontaneous
  Country: JP (occurrence: JP)
  Receive Date: 20170906
  Receipt Date: 20170906
  Transmission Date: 20171127
  Serious: Yes (Other)
  Sender: FDA-Public Use
  Company Number: PHJP1996JP002532

PATIENT
  Age: 60 Year
  Sex: Male

DRUGS (2)
  1. RIMACTAN G-T02912+CAPS [Suspect]
     Active Substance: RIFAMPIN
     Indication: PRODUCT USED FOR UNKNOWN INDICATION
     Route: 048
     Dates: start: 19930601
  2. WARFARIN//WARFARIN POTASSIUM [Concomitant]
     Indication: PRODUCT USED FOR UNKNOWN INDICATION
     Route: 048

REACTIONS (2)
  - Cerebral infarction [Unknown]
  - Drug level decreased [Unknown]

NARRATIVE: CASE EVENT DATE: 19930701
